FAERS Safety Report 23940043 (Version 1)
Quarter: 2024Q2

REPORT INFORMATION
  Report Type: Spontaneous
  Country: DE (occurrence: None)
  Receive Date: 20240605
  Receipt Date: 20240605
  Transmission Date: 20240716
  Serious: Yes (Other)
  Sender: FDA-Public Use
  Company Number: 2024A124372

PATIENT
  Sex: Female

DRUGS (1)
  1. SYMBICORT [Suspect]
     Active Substance: BUDESONIDE\FORMOTEROL FUMARATE DIHYDRATE
     Dosage: 320 UG, AS REQUIRED AS REQUIRED
     Route: 055
     Dates: start: 202401

REACTIONS (3)
  - Parkinson^s disease [Unknown]
  - Product use issue [Unknown]
  - Intentional product misuse [Unknown]
